FAERS Safety Report 5213572-4 (Version None)
Quarter: 2007Q1

REPORT INFORMATION
  Report Type: 
  Country: None (occurrence: None)
  Receive Date: 20070119
  Receipt Date: 20070110
  Transmission Date: 20070707
  Serious: Yes (Hospitalization)
  Sender: FDA-Public Use
  Company Number: PHHO2007JP01090

PATIENT
  Age: 66 Year
  Sex: Female

DRUGS (1)
  1. LOCHOL [Suspect]
     Indication: HYPERCHOLESTEROLAEMIA
     Dosage: 20MG
     Route: 048
     Dates: start: 20011106

REACTIONS (5)
  - BLEEDING TIME PROLONGED [None]
  - DEPRESSED LEVEL OF CONSCIOUSNESS [None]
  - HEADACHE [None]
  - SUBARACHNOID HAEMORRHAGE [None]
  - SURGERY [None]
